FAERS Safety Report 10222771 (Version 2)
Quarter: 2014Q2

REPORT INFORMATION
  Report Type: Spontaneous
  Country: GB (occurrence: GB)
  Receive Date: 20140606
  Receipt Date: 20140606
  Transmission Date: 20141212
  Serious: Yes (Other)
  Sender: FDA-Public Use
  Company Number: GB-BRISTOL-MYERS SQUIBB COMPANY-20721635

PATIENT
  Age: 50 Year
  Sex: Male

DRUGS (13)
  1. FORXIGA [Suspect]
     Indication: BLOOD GLUCOSE ABNORMAL
     Route: 048
     Dates: start: 20140425, end: 20140428
  2. SULFONYLUREA [Concomitant]
  3. GLUCOPHAGE [Concomitant]
     Indication: DIABETES MELLITUS
     Route: 048
     Dates: start: 201304
  4. ASPIRIN [Concomitant]
     Route: 048
     Dates: start: 201004
  5. BISOPROLOL FUMARATE [Concomitant]
     Route: 048
     Dates: start: 201004
  6. NICORANDIL [Concomitant]
     Route: 048
     Dates: start: 201108
  7. RAMIPRIL [Concomitant]
     Route: 048
     Dates: start: 201010
  8. SIMVASTATIN [Concomitant]
     Route: 048
     Dates: start: 201007
  9. TESTOSTERONE [Concomitant]
     Dosage: 250MG/ML, 4ML AMP
     Dates: start: 201401
  10. ALPROSTADIL [Concomitant]
     Dates: start: 201404
  11. GTN SPRAY [Concomitant]
     Dates: start: 201404
  12. FLUTICASONE [Concomitant]
     Route: 055
     Dates: start: 201104
  13. SALBUTAMOL [Concomitant]
     Route: 055
     Dates: start: 201306

REACTIONS (1)
  - Chest pain [Recovered/Resolved]
